FAERS Safety Report 5505237-6 (Version None)
Quarter: 2007Q4

REPORT INFORMATION
  Report Type: 
  Country: None (occurrence: None)
  Receive Date: 20071031
  Receipt Date: 20071016
  Transmission Date: 20080405
  Serious: Yes (Hospitalization)
  Sender: FDA-Public Use
  Company Number: 161409ISR

PATIENT
  Age: 34 Year
  Sex: Male

DRUGS (1)
  1. PREDNISOLONE [Suspect]
     Indication: CROHN'S DISEASE
     Dosage: ORAL
     Route: 048

REACTIONS (5)
  - ABDOMINAL PAIN UPPER [None]
  - ABDOMINAL TENDERNESS [None]
  - C-REACTIVE PROTEIN INCREASED [None]
  - GALLBLADDER PERFORATION [None]
  - PYREXIA [None]
